FAERS Safety Report 23138629 (Version 1)
Quarter: 2023Q4

REPORT INFORMATION
  Report Type: Spontaneous
  Country: US (occurrence: None)
  Receive Date: 20231101
  Receipt Date: 20231101
  Transmission Date: 20240110
  Serious: No
  Sender: FDA-Public Use
  Company Number: None

PATIENT
  Age: 13 Year
  Sex: Male
  Weight: 82.2 kg

DRUGS (4)
  1. LITFULO [Suspect]
     Active Substance: RITLECITINIB TOSYLATE
     Indication: Alopecia areata
     Dosage: FREQUENCY : DAILY;?
     Route: 048
     Dates: start: 20231010
  2. VENTOLIN HFA [Concomitant]
     Active Substance: ALBUTEROL SULFATE
     Dates: start: 20231005
  3. TRETINOIN [Concomitant]
     Active Substance: TRETINOIN
     Dates: start: 20231005
  4. BETAMETHASONE [Concomitant]
     Active Substance: BETAMETHASONE
     Dates: start: 20231005

REACTIONS (1)
  - Nail injury [None]

NARRATIVE: CASE EVENT DATE: 20231030
